FAERS Safety Report 15590727 (Version 1)
Quarter: 2018Q4

REPORT INFORMATION
  Report Type: Spontaneous
  Country: IT (occurrence: IT)
  Receive Date: 20181106
  Receipt Date: 20181106
  Transmission Date: 20190205
  Serious: Yes (Other)
  Sender: FDA-Public Use
  Company Number: IT-PFIZER INC-2018447936

PATIENT
  Age: 50 Year
  Sex: Female

DRUGS (6)
  1. EUTIROX [Concomitant]
     Active Substance: LEVOTHYROXINE SODIUM
  2. PALEXIA [Concomitant]
     Active Substance: TAPENTADOL HYDROCHLORIDE
  3. DELTACORTENE [Concomitant]
     Active Substance: PREDNISONE
  4. FASLODEX [Concomitant]
     Active Substance: FULVESTRANT
  5. LEVOPRAID [LEVOSULPIRIDE] [Concomitant]
  6. IBRANCE [Suspect]
     Active Substance: PALBOCICLIB
     Indication: BREAST CANCER
     Dosage: 125 MG, 1X/DAY
     Route: 048
     Dates: start: 20180116, end: 20180312

REACTIONS (4)
  - Thrombocytopenia [Unknown]
  - Hyperpyrexia [Unknown]
  - Febrile neutropenia [Unknown]
  - Hypertransaminasaemia [Unknown]

NARRATIVE: CASE EVENT DATE: 20180122
